FAERS Safety Report 8872918 (Version 2)
Quarter: 2013Q1

REPORT INFORMATION
  Report Type: Report from Study
  Country: US (occurrence: US)
  Receive Date: 20121030
  Receipt Date: 20130123
  Transmission Date: 20140127
  Serious: Yes (Hospitalization, Other)
  Sender: FDA-Public Use
  Company Number: US-ROCHE-1149335

PATIENT
  Age: 86 Year
  Sex: Male
  Weight: 67.19 kg

DRUGS (5)
  1. ZELBORAF [Suspect]
     Indication: METASTATIC MALIGNANT MELANOMA
     Dosage: 480 MG IN MORNING, 240 MG IN EVENING
     Route: 048
     Dates: start: 201207
  2. ZELBORAF [Suspect]
     Dosage: 480 MG IN MORNING, 240 MG IN THE EVENING
     Route: 048
     Dates: start: 201112
  3. ZELBORAF [Suspect]
     Route: 048
     Dates: start: 201202, end: 201206
  4. ZELBORAF [Suspect]
     Route: 048
     Dates: start: 20130110
  5. LASIX [Concomitant]
     Indication: OEDEMA
     Route: 048
     Dates: start: 201201

REACTIONS (8)
  - Prostatomegaly [Recovering/Resolving]
  - Urinary tract infection [Recovering/Resolving]
  - Dizziness [Unknown]
  - Cardiac disorder [Recovering/Resolving]
  - Long QT syndrome [Unknown]
  - Sunburn [Not Recovered/Not Resolved]
  - Fatigue [Not Recovered/Not Resolved]
  - Rash generalised [Recovered/Resolved]
